FAERS Safety Report 6715530-7 (Version None)
Quarter: 2010Q2

REPORT INFORMATION
  Report Type: 
  Country: None (occurrence: None)
  Receive Date: 20100507
  Receipt Date: 20100427
  Transmission Date: 20101027
  Serious: Yes (Death, Hospitalization)
  Sender: FDA-Public Use
  Company Number: JP-ROCHE-665253

PATIENT
  Sex: Female
  Weight: 40 kg

DRUGS (22)
  1. XELODA [Suspect]
     Indication: BREAST CANCER METASTATIC
     Dosage: XELODA 300(CAPECITABINE)
     Route: 048
     Dates: start: 20080222
  2. XELODA [Suspect]
     Route: 048
     Dates: start: 20090206
  3. XELODA [Suspect]
     Route: 048
     Dates: end: 20090213
  4. XELODA [Suspect]
     Dosage: 2 WEEKS ADMINISTRATION FOLLOWED BY 1 WEEK REST.
     Route: 048
     Dates: start: 20090410, end: 20090717
  5. XELODA [Suspect]
     Dosage: 2 WEEKS ADMINISTRATION FOLLOWED BY 1 WEEK REST.
     Route: 048
     Dates: start: 20100108, end: 20100330
  6. XELODA [Suspect]
     Route: 048
  7. HERCEPTIN [Suspect]
     Indication: BREAST CANCER METASTATIC
     Route: 041
     Dates: start: 20070608, end: 20070608
  8. HERCEPTIN [Suspect]
     Route: 041
     Dates: start: 20070615
  9. HERCEPTIN [Suspect]
     Route: 041
     Dates: start: 20080606
  10. HERCEPTIN [Suspect]
     Route: 041
     Dates: start: 20090606
  11. HERCEPTIN [Suspect]
     Route: 041
     Dates: end: 20100319
  12. HERCEPTIN [Suspect]
     Route: 041
  13. ENDOXAN [Suspect]
     Indication: BREAST CANCER METASTATIC
     Route: 048
     Dates: start: 20090410, end: 20090717
  14. TAXOTERE [Suspect]
     Indication: BREAST CANCER METASTATIC
     Route: 041
     Dates: start: 20090227, end: 20090227
  15. OXALIPLATIN [Suspect]
     Indication: BREAST CANCER
     Dosage: DRUG NAME REPORTED AS ELPLAT
     Route: 041
     Dates: start: 20090401
  16. LIPITOR [Concomitant]
     Dosage: LIPITOR(ATORVASTATIN CALCIUM)
     Route: 048
     Dates: end: 20100330
  17. PONTAL [Concomitant]
     Route: 048
     Dates: end: 20100330
  18. SELBEX [Concomitant]
     Route: 048
     Dates: end: 20100330
  19. OXYCONTIN [Concomitant]
     Dosage: OXYCONTIN(OXYCODONE HYDROCHLORIDE), SUSTAINED-RELEASE TABLET
     Route: 048
     Dates: start: 20100219, end: 20100330
  20. OXINORM [Concomitant]
     Dosage: OXINORM(OXYCODONE HYDROCHLORIDE), SINGLE USE, POWDERED MEDICINE
     Route: 048
     Dates: start: 20100219, end: 20100330
  21. MAGNESIUM OXIDE [Concomitant]
     Dosage: UNKNOWNDRUG(MAGNESIUM OXIDE)
     Route: 048
     Dates: start: 20100219, end: 20100330
  22. NOVAMIN (PROCHLORPERAZINE) [Concomitant]
     Dosage: NOVAMIN(PROCHLORPERAZINE MALEATE)
     Route: 048
     Dates: start: 20100305, end: 20100330

REACTIONS (4)
  - CELLULITIS [None]
  - INTERSTITIAL LUNG DISEASE [None]
  - PALMAR-PLANTAR ERYTHRODYSAESTHESIA SYNDROME [None]
  - VISION BLURRED [None]
